FAERS Safety Report 5596433-0 (Version None)
Quarter: 2007Q4

REPORT INFORMATION
  Report Type: 
  Country: None (occurrence: None)
  Receive Date: 20071218
  Receipt Date: 20070207
  Transmission Date: 20080405
  Serious: Yes (Hospitalization, Other)
  Sender: FDA-Public Use
  Company Number: 2006045279

PATIENT
  Age: 43 Year
  Sex: Male
  Weight: 72.6 kg

DRUGS (1)
  1. BEXTRA [Suspect]
     Indication: ARTHRALGIA
     Dosage: (10 MG,ONE TO TWO TIMES)
     Dates: start: 20040201

REACTIONS (1)
  - MYOCARDIAL INFARCTION [None]
